FAERS Safety Report 5382282-5 (Version None)
Quarter: 2007Q3

REPORT INFORMATION
  Report Type: 
  Country: None (occurrence: None)
  Receive Date: 20070709
  Receipt Date: 20070705
  Transmission Date: 20080115
  Serious: Yes (Death)
  Sender: FDA-Public Use
  Company Number: JP-GENENTECH-244081

PATIENT
  Age: 74 Year
  Sex: Female

DRUGS (6)
  1. ACTIVASE [Suspect]
     Indication: CEREBRAL ARTERY EMBOLISM
     Route: 042
     Dates: start: 20070410, end: 20070410
  2. DEXTRAN 40-LACTATED RINGER'S SOLUTION [Concomitant]
     Indication: DRUG USE FOR UNKNOWN INDICATION
     Dates: start: 20070410, end: 20070413
  3. ZANTAC [Concomitant]
     Indication: DRUG USE FOR UNKNOWN INDICATION
     Dates: start: 20070410, end: 20070417
  4. RADICUT [Concomitant]
     Indication: DRUG USE FOR UNKNOWN INDICATION
     Dosage: INJECTION 30 MG
     Dates: start: 20070410, end: 20070417
  5. DIGOXIN [Concomitant]
     Indication: DRUG USE FOR UNKNOWN INDICATION
     Dates: start: 20070411, end: 20070412
  6. GLYCEOL [Concomitant]
     Indication: DRUG USE FOR UNKNOWN INDICATION
     Dosage: UNK, UNK
     Dates: start: 20070411, end: 20070417

REACTIONS (3)
  - ASTHMA [None]
  - HAEMORRHAGIC CEREBRAL INFARCTION [None]
  - TRACHEAL STENOSIS [None]
